FAERS Safety Report 24680011 (Version 2)
Quarter: 2025Q3

REPORT INFORMATION
  Report Type: Spontaneous
  Country: JP (occurrence: JP)
  Receive Date: 20241129
  Receipt Date: 20250810
  Transmission Date: 20251021
  Serious: Yes (Death, Other)
  Sender: ALEXION PHARMACEUTICALS
  Company Number: JP-ASTRAZENECA-202411GLO012339JP

PATIENT
  Age: 72 Year
  Sex: Female

DRUGS (2)
  1. OSIMERTINIB [Suspect]
     Active Substance: OSIMERTINIB
     Indication: Adenocarcinoma
  2. GEFITINIB [Suspect]
     Active Substance: GEFITINIB
     Indication: Adenocarcinoma

REACTIONS (4)
  - Metastases to lung [Fatal]
  - Metastases to liver [Fatal]
  - Malignant neoplasm progression [Fatal]
  - Drug resistance [Fatal]
